FAERS Safety Report 11311672 (Version 2)
Quarter: 2015Q3

REPORT INFORMATION
  Report Type: Spontaneous
  Country: US (occurrence: US)
  Receive Date: 20150727
  Receipt Date: 20150805
  Transmission Date: 20151125
  Serious: No
  Sender: FDA-Public Use
  Company Number: US-BAYER-2015-377719

PATIENT
  Age: 37 Year
  Sex: Female

DRUGS (1)
  1. MIRENA [Suspect]
     Active Substance: LEVONORGESTREL
     Dosage: 20 MCG/24HR, CONT
     Route: 015
     Dates: start: 201409

REACTIONS (8)
  - Burning sensation [None]
  - Nausea [None]
  - Feeling abnormal [Recovering/Resolving]
  - Abdominal pain lower [Recovered/Resolved]
  - Mood swings [Not Recovered/Not Resolved]
  - Menstruation delayed [Recovered/Resolved]
  - Pain [Recovering/Resolving]
  - Device issue [None]

NARRATIVE: CASE EVENT DATE: 2014
